FAERS Safety Report 8076631-7 (Version None)
Quarter: 2012Q1

REPORT INFORMATION
  Report Type: 
  Country: None (occurrence: None)
  Receive Date: 20120127
  Receipt Date: 20120119
  Transmission Date: 20120608
  Serious: Yes (Hospitalization)
  Sender: FDA-Public Use
  Company Number: US-BAYER-2011-066998

PATIENT
  Age: 34 Year
  Sex: Female
  Weight: 61 kg

DRUGS (5)
  1. LORTAB [Concomitant]
     Indication: PAIN
     Dosage: 5/500 MG
     Route: 048
     Dates: start: 20090701, end: 20091201
  2. IBUPROFEN [Concomitant]
     Indication: PAIN
     Dosage: UNK
     Route: 048
     Dates: start: 20091101
  3. DOXYCYCLINE [Concomitant]
     Indication: PNEUMONIA
     Dosage: UNK
     Route: 048
     Dates: start: 20091201
  4. YAZ [Suspect]
     Indication: CONTRACEPTION
     Dosage: UNK
     Dates: start: 20090501, end: 20091201
  5. PROTONIX [Concomitant]

REACTIONS (10)
  - ANXIETY [None]
  - NAUSEA [None]
  - CHEST PAIN [None]
  - PAIN [None]
  - PULMONARY INFARCTION [None]
  - DYSPNOEA [None]
  - EMOTIONAL DISTRESS [None]
  - PULMONARY EMBOLISM [None]
  - GENERAL PHYSICAL HEALTH DETERIORATION [None]
  - VOMITING [None]
